FAERS Safety Report 9553391 (Version 1)
Quarter: 2013Q1

REPORT INFORMATION
  Report Type: Spontaneous
  Country: TR (occurrence: None)
  Receive Date: 20120405
  Receipt Date: 20120405
  Transmission Date: 20140127
  Serious: Yes (Other)
  Sender: FDA-Public Use
  Company Number: 2012P1039920

PATIENT
  Sex: Male

DRUGS (1)
  1. AMMONUL [Suspect]

REACTIONS (1)
  - Toxicity to various agents [None]
